FAERS Safety Report 9117578 (Version 2)
Quarter: 2013Q3

REPORT INFORMATION
  Report Type: Spontaneous
  Country: US (occurrence: US)
  Receive Date: 20130225
  Receipt Date: 20130723
  Transmission Date: 20140515
  Serious: No
  Sender: FDA-Public Use
  Company Number: US-BIOGENIDEC-2013BI015700

PATIENT
  Age: 33 Year
  Sex: Female

DRUGS (1)
  1. TYSABRI [Suspect]
     Indication: MULTIPLE SCLEROSIS
     Route: 042
     Dates: start: 20071123

REACTIONS (10)
  - Balance disorder [Not Recovered/Not Resolved]
  - Speech disorder [Recovered/Resolved]
  - Dysgraphia [Recovered/Resolved]
  - Abasia [Recovered/Resolved]
  - VIIth nerve paralysis [Recovered/Resolved]
  - Migraine [Recovered/Resolved]
  - Heart rate increased [Unknown]
  - Hypoaesthesia [Not Recovered/Not Resolved]
  - Central nervous system lesion [Unknown]
  - Multiple sclerosis relapse [Recovered/Resolved]
